FAERS Safety Report 9693362 (Version 3)
Quarter: 2014Q1

REPORT INFORMATION
  Report Type: Spontaneous
  Country: AR (occurrence: AR)
  Receive Date: 20131118
  Receipt Date: 20140213
  Transmission Date: 20141002
  Serious: Yes (Other)
  Sender: FDA-Public Use
  Company Number: AR-AMGEN-ARGSP2012017218

PATIENT
  Age: 46 Year
  Sex: Female

DRUGS (5)
  1. ENBREL [Suspect]
     Indication: RHEUMATOID ARTHRITIS
     Dosage: 50 MG, WEEKLY
     Route: 058
     Dates: start: 20060624, end: 201110
  2. METHOTREXATE [Concomitant]
     Dosage: 30 MG, 1X/DAY
  3. ARCOXIA [Concomitant]
     Dosage: 90 MG, 1X/DAY
  4. LEVOTHYROXINE [Concomitant]
     Dosage: UNK
  5. SERETIDE [Concomitant]
     Dosage: UNK

REACTIONS (8)
  - Oral disorder [Recovered/Resolved]
  - Arthrodesis [Recovering/Resolving]
  - Arthralgia [Not Recovered/Not Resolved]
  - Erythema [Not Recovered/Not Resolved]
  - Arthritis [Recovering/Resolving]
  - Staphylococcal abscess [Recovering/Resolving]
  - Cellulitis [Not Recovered/Not Resolved]
  - Infection [Recovered/Resolved]
